FAERS Safety Report 13466431 (Version 1)
Quarter: 2017Q2

REPORT INFORMATION
  Report Type: Spontaneous
  Country: US (occurrence: US)
  Receive Date: 20170421
  Receipt Date: 20170421
  Transmission Date: 20170830
  Serious: Yes (Disabling)
  Sender: FDA-Public Use
  Company Number: None

PATIENT
  Age: 60 Year
  Sex: Female
  Weight: 74.84 kg

DRUGS (8)
  1. MIRENA [Concomitant]
     Active Substance: LEVONORGESTREL
  2. LINZESS [Suspect]
     Active Substance: LINACLOTIDE
     Indication: CONSTIPATION
     Dosage: FREQUENCY - 1 PILL IN MORNING ON EMPTY STOMACH
     Route: 048
     Dates: start: 20170324
  3. LAMOTRIGINE. [Concomitant]
     Active Substance: LAMOTRIGINE
  4. PAROXETINE. [Concomitant]
     Active Substance: PAROXETINE
  5. MAGNESIUM L THREONATE [Concomitant]
  6. RISPERIDONE. [Concomitant]
     Active Substance: RISPERIDONE
  7. PSEUDOEPHEDRINE HYDROCHLORIDE. [Concomitant]
     Active Substance: PSEUDOEPHEDRINE HYDROCHLORIDE
  8. ALIGN [Concomitant]
     Active Substance: BIFIDOBACTERIUM LONGUM SUBSP. INFANTIS

REACTIONS (4)
  - Feeling abnormal [None]
  - Thinking abnormal [None]
  - Dizziness postural [None]
  - Headache [None]

NARRATIVE: CASE EVENT DATE: 20170330
